FAERS Safety Report 15224196 (Version 5)
Quarter: 2019Q3

REPORT INFORMATION
  Report Type: Spontaneous
  Country: US (occurrence: US)
  Receive Date: 20180731
  Receipt Date: 20190805
  Transmission Date: 20191004
  Serious: Yes (Hospitalization, Other)
  Sender: FDA-Public Use
  Company Number: US-VIFOR (INTERNATIONAL) INC.-VIT-2018-07387

PATIENT
  Age: 69 Year
  Sex: Male
  Weight: 108.96 kg

DRUGS (6)
  1. ZEMPLAR [Concomitant]
     Active Substance: PARICALCITOL
  2. VELTASSA [Suspect]
     Active Substance: PATIROMER
     Indication: HYPERKALAEMIA
     Route: 048
     Dates: start: 20160915
  3. CYMBALTA [Concomitant]
     Active Substance: DULOXETINE HYDROCHLORIDE
  4. PARICALCITOL. [Concomitant]
     Active Substance: PARICALCITOL
  5. VELTASSA [Suspect]
     Active Substance: PATIROMER
     Indication: CHRONIC KIDNEY DISEASE
  6. AMLODIPINE BESYLATE. [Concomitant]
     Active Substance: AMLODIPINE BESYLATE

REACTIONS (11)
  - Constipation [Recovering/Resolving]
  - Rectal haemorrhage [Recovering/Resolving]
  - Chronic kidney disease [Not Recovered/Not Resolved]
  - Diarrhoea [Recovering/Resolving]
  - Ulcer haemorrhage [Unknown]
  - Haematochezia [Recovering/Resolving]
  - Product dose omission [Unknown]
  - Full blood count decreased [Recovering/Resolving]
  - Blood pressure decreased [Recovering/Resolving]
  - Loss of consciousness [Recovering/Resolving]
  - Plasma cell myeloma [Not Recovered/Not Resolved]

NARRATIVE: CASE EVENT DATE: 2016
